FAERS Safety Report 20109406 (Version 2)
Quarter: 2022Q4

REPORT INFORMATION
  Report Type: Report from Study
  Country: EG (occurrence: EG)
  Receive Date: 20211124
  Receipt Date: 20221017
  Transmission Date: 20230113
  Serious: Yes (Other)
  Sender: FDA-Public Use
  Company Number: EG-NOVARTISPH-NVSC2021EG258172

PATIENT
  Age: 67 Year
  Sex: Female

DRUGS (12)
  1. ENTRESTO [Suspect]
     Active Substance: SACUBITRIL\VALSARTAN
     Indication: Cardiac failure
     Dosage: 1 DOSAGE FORM, BID (50 MG)
     Route: 048
     Dates: start: 20210804, end: 202110
  2. ENTRESTO [Suspect]
     Active Substance: SACUBITRIL\VALSARTAN
     Dosage: 50 MG, QD
     Route: 048
     Dates: start: 202110, end: 20211108
  3. ENTRESTO [Suspect]
     Active Substance: SACUBITRIL\VALSARTAN
     Dosage: 100 MG, BID
     Route: 048
     Dates: start: 20211109
  4. ENTRESTO [Suspect]
     Active Substance: SACUBITRIL\VALSARTAN
     Dosage: 200 MG
     Route: 065
  5. ENTRESTO [Suspect]
     Active Substance: SACUBITRIL\VALSARTAN
     Dosage: 100 MG
     Route: 065
  6. PLAVIX [Concomitant]
     Active Substance: CLOPIDOGREL BISULFATE
     Indication: Anticoagulant therapy
     Dosage: 75 MG, QD
     Route: 048
  7. FERROGLOBIN [Concomitant]
     Indication: Iron deficiency
     Dosage: UNK, QD
     Route: 048
  8. EXAMIDE [Concomitant]
     Indication: Polyuria
     Dosage: 10 MG, BID,(ONE TABLET)
     Route: 048
  9. CONTROLOC [Concomitant]
     Active Substance: PANTOPRAZOLE SODIUM
     Indication: Gastrointestinal disorder prophylaxis
     Dosage: 40 MG, QD,(BEFORE BREAKFAST)
     Route: 048
  10. CHOLEROSE [Concomitant]
     Indication: Hyperlipidaemia
     Dosage: UNK, QD,(AFTER MEAL)
     Route: 048
  11. ASPIRIN [Concomitant]
     Active Substance: ASPIRIN
     Indication: Anticoagulant therapy
     Dosage: UNK, QD
     Route: 048
  12. EPLERENONE [Concomitant]
     Active Substance: EPLERENONE
     Indication: Cardiac disorder
     Dosage: 50 MG, QD
     Route: 048

REACTIONS (5)
  - Insomnia [Recovering/Resolving]
  - Dyspnoea [Recovering/Resolving]
  - Head discomfort [Recovering/Resolving]
  - Inappropriate schedule of product administration [Recovered/Resolved]
  - Neuritis [Recovering/Resolving]

NARRATIVE: CASE EVENT DATE: 20211001
